FAERS Safety Report 8421854-8 (Version None)
Quarter: 2012Q2

REPORT INFORMATION
  Report Type: 
  Country: None (occurrence: None)
  Receive Date: 20120601
  Receipt Date: 20120522
  Transmission Date: 20120825
  Serious: Yes (Other)
  Sender: FDA-Public Use
  Company Number: AUR-APL-2012-02339

PATIENT
  Age: 69 Year
  Sex: Male
  Weight: 76 kg

DRUGS (9)
  1. SIMVASTATIN [Concomitant]
  2. NAPROXEN [Suspect]
     Indication: PRODUCT USED FOR UNKNOWN INDICATION
     Dates: start: 20120220
  3. BENZYDAMINE HYDROCHLORIDE (BENZYDAMINE HYDROCHLORIDE) [Concomitant]
  4. MACROGOL (MACROGOL) [Concomitant]
  5. C0-CODAMOL (PANADEINE CO) [Concomitant]
  6. CODEINE PHOSPHATE (CODEINE PHSOPHATE) [Concomitant]
  7. DICLOFENAC SODIUM [Concomitant]
  8. OMEPRAZOLE [Concomitant]
  9. ACETAMINOPHEN [Concomitant]

REACTIONS (1)
  - LIP SWELLING [None]
